FAERS Safety Report 13754270 (Version 1)
Quarter: 2017Q3

REPORT INFORMATION
  Report Type: Spontaneous
  Country: US (occurrence: US)
  Receive Date: 20170714
  Receipt Date: 20170714
  Transmission Date: 20171127
  Serious: Yes (Life-Threatening, Disabling, Other)
  Sender: FDA-Public Use
  Company Number: None

PATIENT
  Age: 73 Year
  Sex: Female
  Weight: 56.75 kg

DRUGS (21)
  1. CYMBALTA [Concomitant]
     Active Substance: DULOXETINE HYDROCHLORIDE
  2. VITAMIN D3 [Concomitant]
     Active Substance: CHOLECALCIFEROL
  3. CONDIOINTIN MSM [Concomitant]
  4. EYE DROPS [Concomitant]
     Active Substance: UNSPECIFIED INGREDIENT
  5. VITAMIN C [Concomitant]
     Active Substance: ASCORBIC ACID
  6. TRAMADOL. [Concomitant]
     Active Substance: TRAMADOL
  7. CLONAZEPAM. [Suspect]
     Active Substance: CLONAZEPAM
  8. GLUCOSAMINE [Concomitant]
     Active Substance: GLUCOSAMINE
  9. ARICEPT [Suspect]
     Active Substance: DONEPEZIL HYDROCHLORIDE
     Indication: DEMENTIA ALZHEIMER^S TYPE
     Route: 048
     Dates: start: 20170116, end: 20170331
  10. LIPITOR [Concomitant]
     Active Substance: ATORVASTATIN CALCIUM
  11. ARICEPT [Suspect]
     Active Substance: DONEPEZIL HYDROCHLORIDE
     Indication: DEMENTIA
     Route: 048
     Dates: start: 20170116, end: 20170331
  12. MIRALAX [Concomitant]
     Active Substance: POLYETHYLENE GLYCOL 3350
  13. CLOBETAZOL CREAM [Concomitant]
  14. NEXIUM [Concomitant]
     Active Substance: ESOMEPRAZOLE MAGNESIUM
  15. LINSESS [Concomitant]
  16. BENADRYL [Concomitant]
     Active Substance: DIPHENHYDRAMINE HYDROCHLORIDE
  17. NASAL SPRAY [Concomitant]
     Active Substance: UNSPECIFIED INGREDIENT
  18. ZOLPIDEM [Concomitant]
     Active Substance: ZOLPIDEM\ZOLPIDEM TARTRATE
  19. MUCINEX [Concomitant]
     Active Substance: GUAIFENESIN
  20. CALCIUM [Concomitant]
     Active Substance: CALCIUM
  21. KENALOG [Concomitant]
     Active Substance: TRIAMCINOLONE ACETONIDE

REACTIONS (12)
  - Alopecia [None]
  - Bronchitis [None]
  - Rash [None]
  - Pruritus [None]
  - Diarrhoea [None]
  - Fall [None]
  - Ulcer haemorrhage [None]
  - Dysuria [None]
  - Head injury [None]
  - Arthritis [None]
  - Migraine [None]
  - Pain [None]

NARRATIVE: CASE EVENT DATE: 20170116
